FAERS Safety Report 5074273-9 (Version None)
Quarter: 2006Q3

REPORT INFORMATION
  Report Type: 
  Country: None (occurrence: None)
  Receive Date: 20060803
  Receipt Date: 20060720
  Transmission Date: 20061208
  Serious: Yes (Death, Other)
  Sender: FDA-Public Use
  Company Number: 2006-01638

PATIENT
  Age: 58 Year
  Sex: Female

DRUGS (2)
  1. VELCADE [Suspect]
     Indication: MULTIPLE MYELOMA
     Dosage: 1.00 MG/M2  , 1.30 MG/M2
     Dates: end: 20041127
  2. VELCADE [Suspect]
     Indication: MULTIPLE MYELOMA
     Dosage: 1.00 MG/M2  , 1.30 MG/M2
     Dates: start: 20041029

REACTIONS (6)
  - INFECTION [None]
  - LIVER ABSCESS [None]
  - MENTAL STATUS CHANGES [None]
  - PNEUMONIA [None]
  - SHOCK [None]
  - SOMNOLENCE [None]
